FAERS Safety Report 7780244-1 (Version None)
Quarter: 2011Q3

REPORT INFORMATION
  Report Type: 
  Country: None (occurrence: None)
  Receive Date: 20110927
  Receipt Date: 20110920
  Transmission Date: 20111222
  Serious: Yes (Hospitalization, Other)
  Sender: FDA-Public Use
  Company Number: US-AMGEN-USASP2011048616

PATIENT
  Age: 61 Year
  Sex: Female

DRUGS (1)
  1. ENBREL [Suspect]
     Indication: RHEUMATOID ARTHRITIS
     Dosage: 50 MG, QWK
     Dates: start: 20040927

REACTIONS (5)
  - OSTEOMYELITIS BACTERIAL [None]
  - WOUND [None]
  - STAPHYLOCOCCAL INFECTION [None]
  - CONTUSION [None]
  - BLISTER [None]
